FAERS Safety Report 5139976-6 (Version None)
Quarter: 2006Q4

REPORT INFORMATION
  Report Type: 
  Country: None (occurrence: None)
  Receive Date: 20061031
  Receipt Date: 20060530
  Transmission Date: 20070319
  Serious: Yes (Other)
  Sender: FDA-Public Use
  Company Number: PHHO2006VE08825

PATIENT
  Age: 29 Year
  Sex: Male

DRUGS (4)
  1. LEPONEX [Suspect]
     Indication: SCHIZOPHRENIA
     Dosage: 100 MG, UNK
     Route: 048
     Dates: start: 20060426
  2. LEPONEX [Suspect]
     Dosage: 200 MG, UNK
     Dates: start: 20060601
  3. LEPONEX [Suspect]
     Dosage: 100 MG, UNK
     Route: 048
  4. LEPONEX [Suspect]
     Dosage: 50 MG, UNK
     Route: 048

REACTIONS (3)
  - LYMPHOCYTE COUNT INCREASED [None]
  - NEUTROPHIL COUNT DECREASED [None]
  - WHITE BLOOD CELL COUNT DECREASED [None]
